FAERS Safety Report 15146481 (Version 1)
Quarter: 2018Q3

REPORT INFORMATION
  Report Type: Spontaneous
  Country: US (occurrence: US)
  Receive Date: 20180715
  Receipt Date: 20180715
  Transmission Date: 20181010
  Serious: No
  Sender: FDA-Public Use
  Company Number: US-CEDIPROF, INC.-2052057

PATIENT
  Sex: Female

DRUGS (1)
  1. LEVO?T [Suspect]
     Active Substance: LEVOTHYROXINE SODIUM
     Dates: start: 20170907, end: 20170928

REACTIONS (4)
  - Pruritus [None]
  - Rash [Not Recovered/Not Resolved]
  - Hypersensitivity [None]
  - Urticaria [Not Recovered/Not Resolved]
